FAERS Safety Report 8890407 (Version 2)
Quarter: 2012Q4

REPORT INFORMATION
  Report Type: 
  Country: AU (occurrence: AU)
  Receive Date: 20121107
  Receipt Date: 20121126
  Transmission Date: 20130627
  Serious: Yes (Other)
  Sender: FDA-Public Use
  Company Number: PHHY2012AU101781

PATIENT
  Age: 81 Year
  Sex: Female

DRUGS (6)
  1. ACLASTA [Suspect]
     Dosage: 5 mg, UNK
     Route: 042
     Dates: start: 20121025
  2. OROXINE [Concomitant]
  3. PANADOL [Concomitant]
  4. KEPPRA [Concomitant]
  5. LOMAC [Concomitant]
  6. ATACAND [Concomitant]

REACTIONS (4)
  - Fungating wound [Recovering/Resolving]
  - Skin ulcer haemorrhage [Recovering/Resolving]
  - Blister [Recovering/Resolving]
  - Oedema peripheral [Unknown]
